FAERS Safety Report 18506297 (Version 1)
Quarter: 2020Q4

REPORT INFORMATION
  Report Type: Spontaneous
  Country: US (occurrence: US)
  Receive Date: 20201116
  Receipt Date: 20201116
  Transmission Date: 20210114
  Serious: No
  Sender: FDA-Public Use
  Company Number: US-GILEAD-2020-0503626

PATIENT
  Sex: Male

DRUGS (6)
  1. PROCARDIA [Concomitant]
     Active Substance: NIFEDIPINE
  2. GLIMEPIRIDE. [Concomitant]
     Active Substance: GLIMEPIRIDE
  3. SOFOSBUVIR;VELPATASVIR [Suspect]
     Active Substance: SOFOSBUVIR\VELPATASVIR
     Indication: CHRONIC HEPATITIS C
     Dosage: 1 DOSAGE FORM, QD
     Route: 048
     Dates: start: 20201015
  4. ACTOS [Concomitant]
     Active Substance: PIOGLITAZONE HYDROCHLORIDE
  5. TIZANIDINE HYDROCHLORIDE. [Concomitant]
     Active Substance: TIZANIDINE HYDROCHLORIDE
  6. LESCOL XL [Concomitant]
     Active Substance: FLUVASTATIN SODIUM

REACTIONS (8)
  - Dyspepsia [Recovered/Resolved]
  - Energy increased [Unknown]
  - Blood glucose decreased [Recovered/Resolved]
  - Abdominal distension [Recovered/Resolved]
  - Weight increased [Unknown]
  - Libido increased [Unknown]
  - Tooth fracture [Unknown]
  - Headache [Recovered/Resolved]
